FAERS Safety Report 21144037 (Version 3)
Quarter: 2023Q1

REPORT INFORMATION
  Report Type: Report from Study
  Country: US (occurrence: US)
  Receive Date: 20220728
  Receipt Date: 20230326
  Transmission Date: 20230418
  Serious: Yes (Hospitalization, Other)
  Sender: FDA-Public Use
  Company Number: US-UCBSA-2022033267

PATIENT
  Sex: Male
  Weight: 82 kg

DRUGS (1)
  1. LACOSAMIDE [Suspect]
     Active Substance: LACOSAMIDE
     Indication: Seizure
     Dosage: 200 MILLIGRAM, 2X/DAY (BID)

REACTIONS (4)
  - Hospitalisation [Recovered/Resolved]
  - Surgery [Recovered/Resolved]
  - Road traffic accident [Unknown]
  - Feeling hot [Unknown]

NARRATIVE: CASE EVENT DATE: 20200101
